FAERS Safety Report 22026538 (Version 1)
Quarter: 2023Q1

REPORT INFORMATION
  Report Type: Spontaneous
  Country: US (occurrence: None)
  Receive Date: 20230223
  Receipt Date: 20230223
  Transmission Date: 20230417
  Serious: No
  Sender: FDA-Public Use
  Company Number: 2023A039728

PATIENT
  Sex: Male

DRUGS (1)
  1. BUDESONIDE\FORMOTEROL\GLYCOPYRRONIUM [Suspect]
     Active Substance: BUDESONIDE\FORMOTEROL\GLYCOPYRRONIUM
     Dosage: TWO PUFFS TWO TIMES A DAY
     Route: 055
     Dates: start: 20211105

REACTIONS (4)
  - Discomfort [Unknown]
  - Device use issue [Unknown]
  - Incorrect dose administered by device [Unknown]
  - Drug delivery system malfunction [Unknown]
